FAERS Safety Report 8600850-1 (Version None)
Quarter: 2012Q3

REPORT INFORMATION
  Report Type: 
  Country: None (occurrence: None)
  Receive Date: 20120817
  Receipt Date: 20120807
  Transmission Date: 20120928
  Serious: Yes (Hospitalization)
  Sender: FDA-Public Use
  Company Number: US-ELI_LILLY_AND_COMPANY-US201205001600

PATIENT
  Sex: Female
  Weight: 56.689 kg

DRUGS (1)
  1. FORTEO [Suspect]
     Route: 065

REACTIONS (2)
  - ACCIDENT [None]
  - UNDERDOSE [None]
